FAERS Safety Report 4580384-4 (Version None)
Quarter: 2005Q1

REPORT INFORMATION
  Report Type: 
  Country: None (occurrence: None)
  Receive Date: 20050214
  Receipt Date: 20040112
  Transmission Date: 20050727
  Serious: No
  Sender: FDA-Public Use
  Company Number: US-GLAXOSMITHKLINE-A0492574A

PATIENT
  Sex: Female

DRUGS (5)
  1. LAMICTAL [Suspect]
     Indication: BIPOLAR DISORDER
     Dosage: 25MG PER DAY
     Route: 048
  2. XANAX [Concomitant]
  3. PROZAC [Concomitant]
  4. INDERAL [Concomitant]
  5. TRAZODONE [Concomitant]

REACTIONS (1)
  - NAUSEA [None]
